FAERS Safety Report 7472862-5 (Version None)
Quarter: 2011Q2

REPORT INFORMATION
  Report Type: 
  Country: None (occurrence: None)
  Receive Date: 20110503
  Receipt Date: 20110425
  Transmission Date: 20111010
  Serious: Yes (Hospitalization)
  Sender: FDA-Public Use
  Company Number: 2010SP014822

PATIENT
  Age: 30 Year
  Sex: Female
  Weight: 113.3993 kg

DRUGS (2)
  1. NUVARING [Suspect]
     Indication: CONTRACEPTION
     Dates: start: 20060101, end: 20080101
  2. COUMADIN [Suspect]
     Indication: ANTICOAGULANT THERAPY
     Dates: start: 20080308, end: 20090308

REACTIONS (16)
  - ADRENAL DISORDER [None]
  - DYSPNOEA [None]
  - PARATHYROID DISORDER [None]
  - DEEP VEIN THROMBOSIS [None]
  - ABORTION INDUCED [None]
  - PREGNANCY WITH CONTRACEPTIVE DEVICE [None]
  - MULTIPLE INJURIES [None]
  - HEADACHE [None]
  - DRUG EXPOSURE DURING PREGNANCY [None]
  - PREGNANCY [None]
  - PULMONARY EMBOLISM [None]
  - OVARIAN CYST [None]
  - DRUG EXPOSURE BEFORE PREGNANCY [None]
  - PANCREATIC DISORDER [None]
  - HYPOTHALAMO-PITUITARY DISORDER [None]
  - PAIN [None]
